FAERS Safety Report 6176071-1 (Version None)
Quarter: 2009Q2

REPORT INFORMATION
  Report Type: 
  Country: None (occurrence: None)
  Receive Date: 20090501
  Receipt Date: 20090424
  Transmission Date: 20091009
  Serious: Yes (Hospitalization)
  Sender: FDA-Public Use
  Company Number: SE-PFIZER INC-2009202934

PATIENT

DRUGS (12)
  1. TROMBYL [Suspect]
     Dosage: 160 MG/24H, UNK
     Route: 048
     Dates: end: 20090201
  2. ATENOLOL [Suspect]
     Indication: ATRIAL FIBRILLATION
     Dosage: 25 MG/24H, UNK
     Route: 048
     Dates: end: 20090201
  3. INSULATARD [Concomitant]
     Dosage: UNK
  4. OMEPRAZOL [Concomitant]
     Dosage: UNK
  5. IMODIUM ^JANSSEN-CILAG^ [Concomitant]
     Dosage: UNK
  6. NITROMEX [Concomitant]
     Dosage: UNK
  7. ACETAMINOPHEN [Concomitant]
     Dosage: UNK
  8. PROPAVAN [Concomitant]
     Dosage: UNK
  9. DEXTROPROPOXYPHENE NAPSILATE [Concomitant]
     Dosage: UNK
  10. IMDUR [Concomitant]
     Dosage: UNK
  11. LACTULOSE [Concomitant]
     Dosage: UNK
  12. NOVOMIX [Concomitant]
     Dosage: UNK

REACTIONS (2)
  - BRADYCARDIA [None]
  - EPISTAXIS [None]
